FAERS Safety Report 7829466-1 (Version None)
Quarter: 2011Q4

REPORT INFORMATION
  Report Type: 
  Country: None (occurrence: None)
  Receive Date: 20111020
  Receipt Date: 20110811
  Transmission Date: 20120403
  Serious: Yes (Other)
  Sender: FDA-Public Use
  Company Number: US-ROCHE-1005434

PATIENT
  Sex: Female

DRUGS (1)
  1. OMALIZUMAB [Suspect]
     Indication: ASTHMA

REACTIONS (6)
  - SINUSITIS [None]
  - UPPER RESPIRATORY TRACT INFECTION [None]
  - STRABISMUS [None]
  - EAR INFECTION [None]
  - BRONCHIOLITIS [None]
  - GASTROOESOPHAGEAL REFLUX DISEASE [None]
